FAERS Safety Report 15364472 (Version 1)
Quarter: 2018Q3

REPORT INFORMATION
  Report Type: Spontaneous
  Country: DE (occurrence: DE)
  Receive Date: 20180909
  Receipt Date: 20180909
  Transmission Date: 20181010
  Serious: Yes (Disabling)
  Sender: FDA-Public Use
  Company Number: PHHY2018DE091399

PATIENT
  Sex: Female
  Weight: 95 kg

DRUGS (2)
  1. METOPROLOLSUCCINAT 1A PHARMA [Suspect]
     Active Substance: METOPROLOL SUCCINATE
     Indication: TACHYCARDIA
     Dosage: 47.5 MG, QD (IN THE MORNING)
     Route: 065
  2. METOPROLOLSUCCINAT 1A PHARMA [Suspect]
     Active Substance: METOPROLOL SUCCINATE
     Indication: HYPERTENSION

REACTIONS (3)
  - Fatigue [Recovering/Resolving]
  - Respiratory disorder [Recovering/Resolving]
  - Tachycardia [Recovering/Resolving]
